FAERS Safety Report 6869356-4 (Version None)
Quarter: 2010Q3

REPORT INFORMATION
  Report Type: 
  Country: None (occurrence: None)
  Receive Date: 20100722
  Receipt Date: 20080724
  Transmission Date: 20110219
  Serious: Yes (Other)
  Sender: FDA-Public Use
  Company Number: US-PFIZER INC-2008062719

PATIENT
  Sex: Female

DRUGS (2)
  1. CHANTIX [Suspect]
     Indication: SMOKING CESSATION THERAPY
  2. ANTIDEPRESSANTS [Concomitant]

REACTIONS (3)
  - AGGRESSION [None]
  - IRRITABILITY [None]
  - SUICIDAL IDEATION [None]
